FAERS Safety Report 5527265-7 (Version None)
Quarter: 2007Q4

REPORT INFORMATION
  Report Type: 
  Country: None (occurrence: None)
  Receive Date: 20071128
  Receipt Date: 20071119
  Transmission Date: 20080405
  Serious: Yes (Hospitalization)
  Sender: FDA-Public Use
  Company Number: JP-AVENTIS-200712922JP

PATIENT
  Age: 13 Year
  Sex: Female

DRUGS (8)
  1. ALLEGRA                            /01314201/ [Suspect]
     Indication: RHINITIS ALLERGIC
     Route: 048
     Dates: start: 20040827, end: 20040906
  2. ALLEGRA                            /01314201/ [Suspect]
     Route: 048
     Dates: start: 20050826, end: 20051030
  3. ALLEGRA                            /01314201/ [Suspect]
     Route: 048
     Dates: start: 20070313, end: 20070605
  4. ALLEGRA                            /01314201/ [Suspect]
     Route: 048
     Dates: start: 20070903, end: 20071019
  5. GLYCYRON                           /00466401/ [Concomitant]
     Indication: URTICARIA
     Dosage: DOSE: 4 TABLETS
     Route: 048
     Dates: start: 20070903, end: 20071019
  6. MUCOSTA [Concomitant]
     Dosage: DOSE: 3 TABLETS
     Route: 048
     Dates: start: 20070903, end: 20071015
  7. BIOFERMIN [Concomitant]
     Dosage: DOSE: 3 TABLETS
     Route: 048
     Dates: start: 20070903, end: 20071015
  8. KAKKONTOU [Concomitant]
     Route: 048
     Dates: start: 20071015, end: 20071018

REACTIONS (1)
  - HYPOTENSION [None]
